FAERS Safety Report 7367925-9 (Version None)
Quarter: 2011Q1

REPORT INFORMATION
  Report Type: 
  Country: None (occurrence: None)
  Receive Date: 20110322
  Receipt Date: 20110318
  Transmission Date: 20110831
  Serious: Yes (Other)
  Sender: FDA-Public Use
  Company Number: US-AMGEN-USASP2010003858

PATIENT
  Age: 69 Year
  Sex: Male
  Weight: 114 kg

DRUGS (8)
  1. NPLATE [Suspect]
     Indication: IDIOPATHIC THROMBOCYTOPENIC PURPURA
     Dosage: 2 A?G/KG, QWK
     Dates: start: 20040325
  2. TYLENOL (CAPLET) [Concomitant]
     Dosage: 650 MG, UNK
  3. LANSOPRAZOLE [Concomitant]
     Dosage: 30 MG, QD
  4. METFORMIN [Concomitant]
     Dosage: 500 MG, BID
  5. VALSARTAN [Concomitant]
     Dosage: 80 MG, QD
  6. NPLATE [Suspect]
  7. TRICOR [Concomitant]
     Dosage: 48 MG, QD
  8. CENTRUM SILVER                     /01292501/ [Concomitant]
     Dosage: UNK UNK, QD

REACTIONS (2)
  - MULTIPLE MYELOMA [None]
  - PAIN IN EXTREMITY [None]
